FAERS Safety Report 10484155 (Version 1)
Quarter: 2014Q3

REPORT INFORMATION
  Report Type: Spontaneous
  Country: GR (occurrence: None)
  Receive Date: 20140929
  Receipt Date: 20140929
  Transmission Date: 20150326
  Serious: Yes (Hospitalization, Disabling)
  Sender: FDA-Public Use
  Company Number: None

PATIENT
  Age: 22 Year
  Sex: Male
  Weight: 59 kg

DRUGS (2)
  1. INTERFERON ALFA-2A [Suspect]
     Active Substance: INTERFERON ALFA-2A
     Indication: HEPATITIS D
     Dosage: 1 INJECTION
     Route: 030
     Dates: start: 20111110, end: 20120910
  2. INTERFERON ALFA-2A [Suspect]
     Active Substance: INTERFERON ALFA-2A
     Indication: CHRONIC HEPATITIS B
     Dosage: 1 INJECTION
     Route: 030
     Dates: start: 20111110, end: 20120910

REACTIONS (2)
  - Anxiety [None]
  - Headache [None]

NARRATIVE: CASE EVENT DATE: 20140910
